FAERS Safety Report 21034912 (Version 3)
Quarter: 2022Q3

REPORT INFORMATION
  Report Type: 
  Country: JP (occurrence: JP)
  Receive Date: 20220701
  Receipt Date: 20220716
  Transmission Date: 20221027
  Serious: Yes (Hospitalization)
  Sender: FDA-Public Use
  Company Number: JP-JNJFOC-20220660172

PATIENT
  Age: 72 Year
  Sex: Male

DRUGS (1)
  1. LOPERAMIDE HYDROCHLORIDE [Suspect]
     Active Substance: LOPERAMIDE HYDROCHLORIDE
     Indication: Product used for unknown indication
     Dosage: OFF-LABEL USE 11 LOPERAMIDE HYDROCHLORIDE:1MG
     Route: 048
     Dates: start: 201201, end: 202108

REACTIONS (4)
  - Pneumatosis intestinalis [Recovered/Resolved]
  - Ileus paralytic [Recovered/Resolved]
  - Inappropriate schedule of product administration [Unknown]
  - Off label use [Unknown]
